FAERS Safety Report 13227886 (Version 1)
Quarter: 2017Q1

REPORT INFORMATION
  Report Type: Spontaneous
  Country: CA (occurrence: CA)
  Receive Date: 20170213
  Receipt Date: 20170213
  Transmission Date: 20170428
  Serious: Yes (Hospitalization, Other)
  Sender: FDA-Public Use
  Company Number: CA-SUNOVION-2017SUN000571

PATIENT
  Age: 25 Year
  Sex: Female

DRUGS (6)
  1. NIFEDIPINE XL [Concomitant]
     Active Substance: NIFEDIPINE
  2. DICLECTIN [Concomitant]
     Active Substance: DOXYLAMINE SUCCINATE\PYRIDOXINE HYDROCHLORIDE
  3. MULTIVITAMINS [Concomitant]
     Active Substance: VITAMINS
  4. BUDESONIDE. [Concomitant]
     Active Substance: BUDESONIDE
  5. LEVOTHYROXINE. [Concomitant]
     Active Substance: LEVOTHYROXINE
  6. LATUDA [Suspect]
     Active Substance: LURASIDONE HYDROCHLORIDE
     Indication: BIPOLAR DISORDER
     Dosage: 60 MG, QD
     Route: 048

REACTIONS (3)
  - Pregnancy [Unknown]
  - Premature labour [Recovering/Resolving]
  - Pre-eclampsia [Recovering/Resolving]
